FAERS Safety Report 9846167 (Version 13)
Quarter: 2016Q1

REPORT INFORMATION
  Report Type: Report from Study
  Country: US (occurrence: US)
  Receive Date: 20140127
  Receipt Date: 20160328
  Transmission Date: 20160526
  Serious: Yes (Hospitalization, Other)
  Sender: FDA-Public Use
  Company Number: US-SA-2013SA126164

PATIENT
  Age: 45 Year
  Sex: Female
  Weight: 89.35 kg

DRUGS (6)
  1. AUBAGIO [Suspect]
     Active Substance: TERIFLUNOMIDE
     Indication: MULTIPLE SCLEROSIS
     Route: 048
  2. LISINOPRIL. [Concomitant]
     Active Substance: LISINOPRIL
     Indication: RENAL DISORDER
     Dates: start: 200501
  3. ZOLOFT [Concomitant]
     Active Substance: SERTRALINE HYDROCHLORIDE
     Indication: DEPRESSION
     Dates: start: 200001
  4. METFORMIN [Concomitant]
     Active Substance: METFORMIN HYDROCHLORIDE
     Indication: BLOOD GLUCOSE ABNORMAL
     Dates: start: 200001
  5. ZOLOFT [Concomitant]
     Active Substance: SERTRALINE HYDROCHLORIDE
     Indication: ANXIETY DISORDER
     Dates: start: 200001
  6. AUBAGIO [Suspect]
     Active Substance: TERIFLUNOMIDE
     Indication: MULTIPLE SCLEROSIS
     Route: 048
     Dates: start: 201312

REACTIONS (40)
  - Drug dose omission [Unknown]
  - Seasonal allergy [Unknown]
  - Multiple sclerosis relapse [Unknown]
  - Alopecia [Recovering/Resolving]
  - Paraesthesia [Not Recovered/Not Resolved]
  - Condition aggravated [Unknown]
  - Anal incontinence [Unknown]
  - Temperature intolerance [Unknown]
  - Urinary tract infection [Recovered/Resolved]
  - Blood urine present [Not Recovered/Not Resolved]
  - Vomiting [Unknown]
  - Abdominal pain upper [Unknown]
  - Choking sensation [Unknown]
  - Gait disturbance [Unknown]
  - Depressed mood [Unknown]
  - Nausea [Unknown]
  - Chromaturia [Not Recovered/Not Resolved]
  - Depression [Recovering/Resolving]
  - Malaise [Unknown]
  - Alopecia [Unknown]
  - Asthenia [Unknown]
  - Blood glucose abnormal [Recovering/Resolving]
  - Band sensation [Unknown]
  - Muscular weakness [Unknown]
  - Fall [Unknown]
  - Dysarthria [Unknown]
  - Tremor [Unknown]
  - Sensory disturbance [Unknown]
  - Headache [Unknown]
  - Abdominal discomfort [Unknown]
  - Hypoaesthesia [Not Recovered/Not Resolved]
  - Stress [Unknown]
  - Panic attack [Unknown]
  - Liver function test increased [Unknown]
  - Pain [Unknown]
  - Weight decreased [Unknown]
  - Blindness [Unknown]
  - Urinary incontinence [Unknown]
  - Confusional state [Unknown]
  - Blood pressure abnormal [Recovering/Resolving]

NARRATIVE: CASE EVENT DATE: 2013
